FAERS Safety Report 10961113 (Version 1)
Quarter: 2015Q1

REPORT INFORMATION
  Report Type: Spontaneous
  Country: US (occurrence: US)
  Receive Date: 20150327
  Receipt Date: 20150327
  Transmission Date: 20150721
  Serious: Yes (Death)
  Sender: FDA-Public Use
  Company Number: US-CIPLA LTD.-2015US02323

PATIENT

DRUGS (3)
  1. BENZODIAZEPINE [Suspect]
     Active Substance: BENZODIAZEPINE
  2. ZOLPIDEM TARTARATE [Suspect]
     Active Substance: ZOLPIDEM TARTRATE
  3. BUPROPION [Suspect]
     Active Substance: BUPROPION

REACTIONS (1)
  - Completed suicide [Fatal]
